FAERS Safety Report 6588700-9 (Version None)
Quarter: 2010Q1

REPORT INFORMATION
  Report Type: 
  Country: None (occurrence: None)
  Receive Date: 20100218
  Receipt Date: 20100211
  Transmission Date: 20100710
  Serious: No
  Sender: FDA-Public Use
  Company Number: US-B.I. PHARMACEUTICALS,INC./RIDGEFIELD-2010-BP-01824BP

PATIENT
  Sex: Female

DRUGS (3)
  1. SPIRIVA [Suspect]
     Indication: CHRONIC OBSTRUCTIVE PULMONARY DISEASE
     Dosage: 18 MCG
     Route: 055
     Dates: start: 20081201
  2. CYPROHEPTADINE HCL [Concomitant]
     Indication: HYPERSENSITIVITY
  3. CYPROHEPTADINE HCL [Concomitant]
     Indication: WEIGHT DECREASED

REACTIONS (2)
  - CATARACT [None]
  - HYPERTENSION [None]
